FAERS Safety Report 5994145-2 (Version None)
Quarter: 2008Q4

REPORT INFORMATION
  Report Type: 
  Country: None (occurrence: None)
  Receive Date: 20081210
  Receipt Date: 20081124
  Transmission Date: 20090506
  Serious: Yes (Hospitalization)
  Sender: FDA-Public Use
  Company Number: 8039770

PATIENT
  Age: 35 Year
  Sex: Female

DRUGS (2)
  1. KEPPRA [Suspect]
     Indication: CONVULSION
     Dosage: 1.5 G 1/D; PO
     Route: 048
     Dates: start: 20060101, end: 20080801
  2. KEPPRA [Suspect]
     Indication: CONVULSION
     Dosage: 2.5 G /D, PO
     Route: 048
     Dates: start: 20080801

REACTIONS (6)
  - ANAEMIA [None]
  - BLOOD DISORDER [None]
  - DYSPNOEA [None]
  - OEDEMA [None]
  - PLATELET COUNT INCREASED [None]
  - WHITE BLOOD CELL COUNT DECREASED [None]
